FAERS Safety Report 11697484 (Version 9)
Quarter: 2018Q2

REPORT INFORMATION
  Report Type: Spontaneous
  Country: US (occurrence: US)
  Receive Date: 20151104
  Receipt Date: 20180612
  Transmission Date: 20180711
  Serious: Yes (Other)
  Sender: FDA-Public Use
  Company Number: US-PFIZER INC-2015362493

PATIENT
  Age: 70 Year
  Sex: Female
  Weight: 72.56 kg

DRUGS (8)
  1. LYRICA [Suspect]
     Active Substance: PREGABALIN
     Indication: DRUG DEPENDENCE
     Dosage: 100 MG, UNK
     Route: 048
  2. LYRICA [Suspect]
     Active Substance: PREGABALIN
     Dosage: 200 MG, 2X/DAY
     Route: 048
  3. LYRICA [Suspect]
     Active Substance: PREGABALIN
     Dosage: UNK; (CUTTING THE DOSE IN HALF) (ONLY TAKING ONE INSTEAD OF 2 AS PRESCRIBED)
     Route: 048
     Dates: start: 2018, end: 2018
  4. LYRICA [Suspect]
     Active Substance: PREGABALIN
     Indication: NEURALGIA
     Dosage: 200 MG, 1X/DAY
     Route: 048
  5. LISINOPRIL. [Concomitant]
     Active Substance: LISINOPRIL
     Indication: HYPERTENSION
     Dosage: 10 MG, 2X/DAY
  6. LYRICA [Suspect]
     Active Substance: PREGABALIN
     Dosage: 200 MG, 2X/DAY
     Route: 048
     Dates: start: 20180510, end: 2018
  7. LYRICA [Suspect]
     Active Substance: PREGABALIN
     Indication: ANALGESIC INTERVENTION SUPPORTIVE THERAPY
     Dosage: 200 MG, DAILY
     Route: 048
  8. LYRICA [Suspect]
     Active Substance: PREGABALIN
     Indication: FIBROMYALGIA
     Dosage: 200 MG, TWICE A DAY (Q12)
     Route: 048

REACTIONS (19)
  - Pain [Not Recovered/Not Resolved]
  - Gait disturbance [Unknown]
  - Weight increased [Unknown]
  - Expired product administered [Unknown]
  - Post laminectomy syndrome [Unknown]
  - Muscle spasms [Unknown]
  - Spinal laminectomy [Unknown]
  - Intentional product misuse [Recovered/Resolved]
  - Condition aggravated [Not Recovered/Not Resolved]
  - Back pain [Unknown]
  - Muscle contracture [Unknown]
  - Sleep disorder [Unknown]
  - Tremor [Unknown]
  - Radiculopathy [Unknown]
  - Drug ineffective [Unknown]
  - Neuritis [Unknown]
  - Malaise [Unknown]
  - Fatigue [Unknown]
  - Sciatica [Unknown]

NARRATIVE: CASE EVENT DATE: 2018
